FAERS Safety Report 8920587 (Version 1)
Quarter: 2012Q4

REPORT INFORMATION
  Report Type: 
  Country: US (occurrence: US)
  Receive Date: 20121121
  Receipt Date: 20121121
  Transmission Date: 20130627
  Serious: No
  Sender: FDA-Public Use
  Company Number: US-B.I. PHARMACEUTICALS,INC./RIDGEFIELD-2012-BI-00914BP

PATIENT
  Age: 50 Year
  Sex: Male

DRUGS (4)
  1. SPIRIVA [Suspect]
     Indication: CHRONIC OBSTRUCTIVE PULMONARY DISEASE
     Dosage: 18 mcg
     Route: 055
  2. SYMBICORT [Concomitant]
  3. PROAIR [Concomitant]
  4. SINGULAIR [Concomitant]

REACTIONS (2)
  - Drug ineffective [Unknown]
  - Headache [Unknown]
